FAERS Safety Report 12541655 (Version 2)
Quarter: 2016Q3

REPORT INFORMATION
  Report Type: Spontaneous
  Country: FR (occurrence: FR)
  Receive Date: 20160708
  Receipt Date: 20160720
  Transmission Date: 20161109
  Serious: Yes (Hospitalization)
  Sender: FDA-Public Use
  Company Number: FR-ABBVIE-16P-056-1671153-00

PATIENT
  Age: 10 Year
  Sex: Male

DRUGS (1)
  1. LIPANTHYL [Suspect]
     Active Substance: FENOFIBRATE
     Indication: HYPERTRIGLYCERIDAEMIA
     Dosage: DAILY DOSE: 2 DF; 1 DF TWICE DAILY
     Route: 065
     Dates: start: 20160601, end: 20160618

REACTIONS (3)
  - Drug administered to patient of inappropriate age [Unknown]
  - Lipase increased [Recovered/Resolved]
  - Pancreatitis acute [Recovered/Resolved]

NARRATIVE: CASE EVENT DATE: 20160601
